FAERS Safety Report 5252401-X (Version None)
Quarter: 2007Q1

REPORT INFORMATION
  Report Type: 
  Country: None (occurrence: None)
  Receive Date: 20070301
  Receipt Date: 20061222
  Transmission Date: 20070707
  Serious: No
  Sender: FDA-Public Use
  Company Number: US-BRISTOL-MYERS SQUIBB COMPANY-13584230

PATIENT
  Age: 60 Year
  Sex: Female
  Weight: 53 kg

DRUGS (4)
  1. PACLITAXEL [Suspect]
     Indication: BREAST CANCER
     Route: 042
     Dates: start: 20061026, end: 20061026
  2. ATIVAN [Concomitant]
  3. METHYLPREDNISOLONE 16MG TAB [Concomitant]
     Route: 042
  4. BENADRYL [Concomitant]
     Route: 042

REACTIONS (1)
  - RASH [None]
